FAERS Safety Report 12603554 (Version 1)
Quarter: 2016Q3

REPORT INFORMATION
  Report Type: Spontaneous
  Country: TW (occurrence: TW)
  Receive Date: 20160728
  Receipt Date: 20160728
  Transmission Date: 20161109
  Serious: Yes (Hospitalization, Other)
  Sender: FDA-Public Use
  Company Number: TW-MYLANLABS-2016M1030599

PATIENT

DRUGS (7)
  1. DOCETAXEL. [Suspect]
     Active Substance: DOCETAXEL
     Indication: NASOPHARYNGEAL CANCER RECURRENT
     Dosage: 60 MG/M2 SINGLE 1 H INFUSION ON DAY 1 OF THE COURSE
     Route: 065
  2. PIPERACILLIN AND TAZOBACTAM [Concomitant]
     Active Substance: PIPERACILLIN SODIUM\TAZOBACTAM SODIUM
     Indication: FEBRILE NEUTROPENIA
     Dosage: 3375 MG EVERY 6 H
     Route: 065
  3. FLUOROURACIL. [Suspect]
     Active Substance: FLUOROURACIL
     Indication: NASOPHARYNGEAL CANCER RECURRENT
     Dosage: 800 MG/M2 AS CONTINUOUS PUMP FROM DAY 1 TO 4 OF THE COURSE
     Route: 065
  4. SODIUM CHLORIDE. [Suspect]
     Active Substance: SODIUM CHLORIDE
     Indication: HYPONATRAEMIA
     Dosage: 3% SODIUM CHLORIDE PUMP AT THE RATE OF 20 ML/H
     Route: 065
  5. AMPHOTERICIN B. [Concomitant]
     Active Substance: AMPHOTERICIN B
     Indication: FEBRILE NEUTROPENIA
     Route: 065
  6. CISPLATIN. [Suspect]
     Active Substance: CISPLATIN
     Indication: NASOPHARYNGEAL CANCER RECURRENT
     Dosage: 80 MG/M2 SINGLE 6 H INFUSION ON DAY 1 OF THE COURSE
     Route: 065
  7. POTASSIUM CHLORIDE. [Concomitant]
     Active Substance: POTASSIUM CHLORIDE
     Dosage: 60 MEQ
     Route: 065

REACTIONS (3)
  - Hyponatraemia [Recovering/Resolving]
  - Osmotic demyelination syndrome [Recovering/Resolving]
  - Inappropriate antidiuretic hormone secretion [Recovering/Resolving]
